FAERS Safety Report 7406110-9 (Version None)
Quarter: 2011Q2

REPORT INFORMATION
  Report Type: 
  Country: None (occurrence: None)
  Receive Date: 20110411
  Receipt Date: 20110310
  Transmission Date: 20111010
  Serious: Yes (Death, Other)
  Sender: FDA-Public Use
  Company Number: US-BAYER-200939440NA

PATIENT
  Age: 73 Year
  Sex: Male

DRUGS (13)
  1. TRASYLOL [Suspect]
     Indication: CORONARY ARTERY BYPASS
  2. ALBUMIN HUMAN [ALBUMEN] [Concomitant]
     Dosage: UNK
     Dates: start: 20040220
  3. ACETYLSALICYLIC ACID SRT [Concomitant]
  4. ISORDIL [Concomitant]
  5. LASIX [Concomitant]
  6. COUMADIN [Concomitant]
  7. RED BLOOD CELLS, LEUCOCYTE DEPLETED [Concomitant]
  8. ZESTRIL [Concomitant]
     Dosage: 10 MG, QD
     Route: 048
  9. METOPROLOL TARTRATE [Concomitant]
     Dosage: 25MG TWICE DAILY
  10. TRASYLOL [Suspect]
     Indication: ADHESIOLYSIS
     Route: 042
     Dates: start: 20040220
  11. INS [INSULIN] [Concomitant]
  12. DIGOXIN [Concomitant]
  13. LISINOPRIL [Concomitant]

REACTIONS (13)
  - RENAL FAILURE [None]
  - FEAR [None]
  - MULTI-ORGAN FAILURE [None]
  - PAIN [None]
  - ANXIETY [None]
  - DEATH [None]
  - ANHEDONIA [None]
  - UNEVALUABLE EVENT [None]
  - RENAL IMPAIRMENT [None]
  - RENAL INJURY [None]
  - EMOTIONAL DISTRESS [None]
  - STRESS [None]
  - INJURY [None]
